FAERS Safety Report 8547962-9 (Version None)
Quarter: 2012Q3

REPORT INFORMATION
  Report Type: 
  Country: None (occurrence: None)
  Receive Date: 20120729
  Receipt Date: 20120717
  Transmission Date: 20120928
  Serious: Yes (Other)
  Sender: FDA-Public Use
  Company Number: US-009507513-1106USA00371

PATIENT

DRUGS (4)
  1. FOSAMAX [Suspect]
     Indication: OSTEOPENIA
  2. BONIVA [Suspect]
     Indication: OSTEOPENIA
  3. BONIVA [Suspect]
     Indication: OSTEOPOROSIS PROPHYLAXIS
     Dosage: 150 MG, UNK
     Dates: start: 20070613, end: 20081216
  4. FOSAMAX [Suspect]
     Indication: OSTEOPOROSIS
     Dosage: 70 MG, QW
     Route: 048
     Dates: start: 20060615, end: 20070516

REACTIONS (36)
  - IMPAIRED HEALING [None]
  - GINGIVAL BLEEDING [None]
  - PAIN IN EXTREMITY [None]
  - BREAST CYST [None]
  - FISTULA [None]
  - BACK PAIN [None]
  - MYALGIA [None]
  - OSTEOMYELITIS [None]
  - DENTAL CARIES [None]
  - EXOSTOSIS [None]
  - PLANTAR FASCIITIS [None]
  - SINUS DISORDER [None]
  - ABSCESS [None]
  - LOCALISED INFECTION [None]
  - DENTAL NECROSIS [None]
  - LIMB DISCOMFORT [None]
  - HYPOAESTHESIA [None]
  - TOOTH DISORDER [None]
  - ORAL CAVITY FISTULA [None]
  - WOUND DEHISCENCE [None]
  - SPINAL OSTEOARTHRITIS [None]
  - JOINT STIFFNESS [None]
  - SPONDYLOLISTHESIS [None]
  - PURULENCE [None]
  - ABSCESS ORAL [None]
  - FOOT DEFORMITY [None]
  - TREATMENT FAILURE [None]
  - RADICULAR CYST [None]
  - OSTEONECROSIS OF JAW [None]
  - ORAL DISORDER [None]
  - GENITAL HERPES [None]
  - ARTHRALGIA [None]
  - ORAL INFECTION [None]
  - GINGIVAL DISORDER [None]
  - TOOTH FRACTURE [None]
  - BREAST CALCIFICATIONS [None]
